FAERS Safety Report 8033157-4 (Version None)
Quarter: 2012Q1

REPORT INFORMATION
  Report Type: 
  Country: None (occurrence: None)
  Receive Date: 20120110
  Receipt Date: 20120110
  Transmission Date: 20120608
  Serious: Yes (Other)
  Sender: FDA-Public Use
  Company Number: None

PATIENT
  Age: 39 Year
  Sex: Female
  Weight: 90.718 kg

DRUGS (1)
  1. EXCEDRIN (MIGRAINE) [Suspect]
     Indication: HEADACHE
     Dosage: 2 GELCAPS
     Route: 048
     Dates: start: 20120107, end: 20120110

REACTIONS (4)
  - DYSPNOEA [None]
  - HEADACHE [None]
  - ABDOMINAL PAIN [None]
  - NAUSEA [None]
